FAERS Safety Report 16202912 (Version 2)
Quarter: 2019Q2

REPORT INFORMATION
  Report Type: Spontaneous
  Country: US (occurrence: US)
  Receive Date: 20190416
  Receipt Date: 20190424
  Transmission Date: 20190711
  Serious: No
  Sender: FDA-Public Use
  Company Number: US-BEH-2019101504

PATIENT
  Age: 15 Year
  Sex: Male

DRUGS (1)
  1. HIZENTRA [Suspect]
     Active Substance: HUMAN IMMUNOGLOBULIN G
     Indication: IMMUNODEFICIENCY COMMON VARIABLE
     Dosage: 6 G, QW
     Route: 058
     Dates: start: 20180124

REACTIONS (1)
  - Viral upper respiratory tract infection [Recovering/Resolving]

NARRATIVE: CASE EVENT DATE: 20190315
